FAERS Safety Report 4687412-6 (Version None)
Quarter: 2005Q2

REPORT INFORMATION
  Report Type: 
  Country: None (occurrence: None)
  Receive Date: 20050608
  Receipt Date: 20050608
  Transmission Date: 20051028
  Serious: Yes (Death)
  Sender: FDA-Public Use
  Company Number: None

PATIENT
  Age: 77 Year
  Sex: Male
  Weight: 85 kg

DRUGS (1)
  1. AMIODARONE 200MG [Suspect]
     Indication: ATRIAL FIBRILLATION
     Dosage: 200MG  DAILY ORAL
     Route: 048

REACTIONS (8)
  - ATRIAL FLUTTER [None]
  - DRUG TOXICITY [None]
  - DYSPNOEA [None]
  - HYPOXIA [None]
  - LUNG DISORDER [None]
  - PULMONARY FUNCTION TEST ABNORMAL [None]
  - RESPIRATORY FAILURE [None]
  - SUPRAVENTRICULAR TACHYCARDIA [None]
